FAERS Safety Report 6726653-0 (Version None)
Quarter: 2010Q2

REPORT INFORMATION
  Report Type: 
  Country: None (occurrence: None)
  Receive Date: 20100514
  Receipt Date: 20100504
  Transmission Date: 20101027
  Serious: Yes (Hospitalization)
  Sender: FDA-Public Use
  Company Number: SE-AMGEN-US412272

PATIENT
  Sex: Female

DRUGS (13)
  1. ENBREL [Suspect]
     Indication: SERONEGATIVE ARTHRITIS
     Dosage: DOSE UNKNOWN
     Dates: start: 20050301, end: 20060301
  2. METHOTREXATE [Suspect]
     Dosage: DOSE UNKNOWN
     Dates: start: 20050101, end: 20060301
  3. METHOTREXATE [Suspect]
     Dosage: DOSE UNKNOWN
     Dates: start: 20070901, end: 20091201
  4. METHOTREXATE [Suspect]
     Dosage: DOSE 10 MG WEEKLY
     Dates: start: 20100105
  5. ARAVA [Suspect]
     Dosage: DOSE UNKNOWN
     Route: 048
     Dates: start: 20060301, end: 20070801
  6. HUMIRA [Suspect]
     Dosage: DOSE UNKNOWN
     Dates: start: 20060301, end: 20091201
  7. OMEPRAZOLE [Concomitant]
  8. CALCICHEW [Concomitant]
  9. ACETAMINOPHEN [Concomitant]
  10. PREDNISOLONE [Concomitant]
  11. VOLTAREN [Concomitant]
  12. ORUDIS - SLOW RELEASE [Concomitant]
  13. FOLACIN [Concomitant]

REACTIONS (2)
  - CERVIX NEOPLASM [None]
  - COUGH [None]
